FAERS Safety Report 6145196-9 (Version None)
Quarter: 2009Q2

REPORT INFORMATION
  Report Type: 
  Country: None (occurrence: None)
  Receive Date: 20090406
  Receipt Date: 20090403
  Transmission Date: 20091009
  Serious: Yes (Death, Life-Threatening, Hospitalization)
  Sender: FDA-Public Use
  Company Number: GB-BAYER-200916658GPV

PATIENT
  Age: 35 Year
  Sex: Male
  Weight: 55 kg

DRUGS (7)
  1. MOXIFLOXACIN HCL [Suspect]
     Indication: PULMONARY TUBERCULOSIS
     Dosage: AS USED: 400 MG
     Route: 048
     Dates: start: 20090109
  2. RIFAMPICIN [Suspect]
     Indication: PULMONARY TUBERCULOSIS
     Dosage: AS USED: 600 MG
     Route: 048
     Dates: start: 20090109
  3. PYRAZINAMIDE [Suspect]
     Indication: PULMONARY TUBERCULOSIS
     Route: 048
     Dates: start: 20090109
  4. AMITRIPTYLLIN [Suspect]
     Indication: NEUROPATHY PERIPHERAL
     Route: 048
     Dates: start: 20090302, end: 20090319
  5. ISONIAZID [Suspect]
     Indication: PULMONARY TUBERCULOSIS
     Route: 048
     Dates: start: 20090109
  6. ETHAMBUTOL HCL [Suspect]
     Indication: PULMONARY TUBERCULOSIS
     Route: 048
     Dates: start: 20090109
  7. PYRIDOXINE [Concomitant]
     Indication: DRUG USE FOR UNKNOWN INDICATION
     Route: 048
     Dates: start: 20090302, end: 20090319

REACTIONS (2)
  - GUILLAIN-BARRE SYNDROME [None]
  - PNEUMONIA ASPIRATION [None]
